FAERS Safety Report 7834264-9 (Version None)
Quarter: 2011Q4

REPORT INFORMATION
  Report Type: 
  Country: None (occurrence: None)
  Receive Date: 20111024
  Receipt Date: 20111011
  Transmission Date: 20120403
  Serious: Yes (Hospitalization)
  Sender: FDA-Public Use
  Company Number: JP-SANOFI-AVENTIS-2011SA067806

PATIENT
  Age: 81 Year
  Sex: Male
  Weight: 62.9 kg

DRUGS (14)
  1. FERROUS CITRATE [Concomitant]
     Route: 048
     Dates: start: 20110210
  2. CLOPIDOGREL BISULFATE [Suspect]
     Route: 065
     Dates: start: 20101211
  3. HEPARIN [Concomitant]
     Dosage: DOSE:2000 UNIT(S)
     Route: 042
     Dates: start: 20100324, end: 20100324
  4. VALSARTAN [Concomitant]
     Route: 048
  5. CALBLOCK [Concomitant]
     Route: 048
  6. CLOPIDOGREL BISULFATE [Suspect]
     Route: 065
     Dates: start: 20101005, end: 20101120
  7. ASPIRIN [Concomitant]
     Route: 048
     Dates: start: 20101005, end: 20101130
  8. ISOSORBIDE MONONITRATE [Concomitant]
     Route: 048
     Dates: end: 20110505
  9. ASPIRIN [Concomitant]
     Route: 048
     Dates: start: 20101211
  10. HEPARIN [Concomitant]
     Dosage: DOSE:4500 UNIT(S)
     Route: 042
     Dates: start: 20100324, end: 20100324
  11. DILTIAZEM HCL [Concomitant]
     Route: 048
  12. ALLOPURINOL [Concomitant]
     Route: 048
  13. CLOPIDOGREL BISULFATE [Suspect]
     Route: 065
     Dates: start: 20100318, end: 20100928
  14. ASPIRIN [Concomitant]
     Route: 048
     Dates: start: 20010101, end: 20100928

REACTIONS (1)
  - COLON CANCER [None]
